FAERS Safety Report 4847006-6 (Version None)
Quarter: 2005Q4

REPORT INFORMATION
  Report Type: 
  Country: None (occurrence: None)
  Receive Date: 20051201
  Receipt Date: 20051118
  Transmission Date: 20060501
  Serious: Yes (Other)
  Sender: FDA-Public Use
  Company Number: 2005158046

PATIENT
  Sex: Female

DRUGS (1)
  1. BENADRYL ALLERGY SINUS HEADACHE (DIPHENHYDRAMINE, PARACETAMOL, PSEUDOE [Suspect]
     Dosage: 1 THEN ANOTHER ONE 3 HOURS
     Dates: start: 19960101

REACTIONS (2)
  - THROAT TIGHTNESS [None]
  - URTICARIA [None]
